FAERS Safety Report 4964564-1 (Version None)
Quarter: 2006Q1

REPORT INFORMATION
  Report Type: 
  Country: None (occurrence: None)
  Receive Date: 20060331
  Receipt Date: 20060316
  Transmission Date: 20060701
  Serious: Yes (Hospitalization, Other)
  Sender: FDA-Public Use
  Company Number: MAG-2006-0000429

PATIENT
  Age: 7 Year
  Sex: Male

DRUGS (1)
  1. THEOPHYLLINE [Suspect]
     Dosage: ORAL
     Route: 048

REACTIONS (6)
  - ACCIDENTAL OVERDOSE [None]
  - CONVULSION [None]
  - ELECTROENCEPHALOGRAM ABNORMAL [None]
  - HAEMODIALYSIS [None]
  - PYREXIA [None]
  - VOMITING [None]
